FAERS Safety Report 8154658 (Version 4)
Quarter: 2013Q4

REPORT INFORMATION
  Report Type: Spontaneous
  Country: US (occurrence: US)
  Receive Date: 20110923
  Receipt Date: 20131210
  Transmission Date: 20140711
  Serious: Yes (Death, Hospitalization)
  Sender: FDA-Public Use
  Company Number: US-GLAXOSMITHKLINE-A0915564A

PATIENT
  Age: 73 Year
  Sex: Female
  Weight: 109.1 kg

DRUGS (3)
  1. AVANDIA [Suspect]
     Indication: DIABETES MELLITUS
     Dosage: 4MG PER DAY
     Route: 048
     Dates: start: 200006, end: 20071003
  2. INSULIN [Concomitant]
  3. FOSAMAX [Concomitant]

REACTIONS (4)
  - Status epilepticus [Fatal]
  - Hyperlipidaemia [Unknown]
  - Cardiac failure congestive [Unknown]
  - Multiple fractures [Unknown]
